FAERS Safety Report 6752488-9 (Version None)
Quarter: 2010Q2

REPORT INFORMATION
  Report Type: 
  Country: None (occurrence: None)
  Receive Date: 20100602
  Receipt Date: 20090701
  Transmission Date: 20101027
  Serious: Yes (Death, Other)
  Sender: FDA-Public Use
  Company Number: TR-SANOFI-AVENTIS-200913930EU

PATIENT
  Age: 67 Year
  Sex: Male

DRUGS (5)
  1. ACETYLSALICYLIC ACID [Suspect]
  2. FUROSEMIDE [Suspect]
  3. CORDARONE [Suspect]
  4. COVERSYL /FRA/ [Suspect]
  5. ENDOL [Suspect]

REACTIONS (2)
  - SEPTIC SHOCK [None]
  - TOXIC EPIDERMAL NECROLYSIS [None]
